FAERS Safety Report 10072280 (Version 1)
Quarter: 2014Q2

REPORT INFORMATION
  Report Type: Report from Study
  Country: DE (occurrence: DE)
  Receive Date: 20140411
  Receipt Date: 20140411
  Transmission Date: 20141212
  Serious: Yes (Other)
  Sender: FDA-Public Use
  Company Number: DE-TEVA-474433USA

PATIENT
  Age: 71 Year
  Sex: Female

DRUGS (6)
  1. BENDAMUSTINE [Suspect]
     Indication: PLASMA CELL MYELOMA
     Route: 065
  2. BORTEZOMIB [Suspect]
     Indication: PLASMA CELL MYELOMA
     Dosage: UNKNOWN/D
     Route: 065
     Dates: start: 20120716
  3. BORTEZOMIB [Suspect]
     Indication: PLASMA CELL MYELOMA
     Dosage: UNKNOWN/D
     Route: 065
     Dates: start: 20120726
  4. BORTEZOMIB [Suspect]
     Indication: PLASMA CELL MYELOMA
     Dosage: UNKNOWN/D
     Route: 065
     Dates: start: 20120806
  5. BORTEZOMIB [Suspect]
     Indication: PLASMA CELL MYELOMA
     Dosage: UNKNOWN/D
     Route: 065
     Dates: start: 20120826, end: 20120827
  6. BORTEZOMIB [Suspect]
     Indication: PLASMA CELL MYELOMA
     Dosage: UNKNOWN/D
     Route: 065
     Dates: start: 20120918

REACTIONS (12)
  - Ascites [Recovered/Resolved]
  - Pericardial effusion [Recovered/Resolved]
  - Anaemia [Recovered/Resolved]
  - Thrombocytopenia [Recovered/Resolved]
  - Leukopenia [Recovered/Resolved]
  - Vomiting [Recovered/Resolved]
  - Diarrhoea [Recovered/Resolved]
  - Pneumonia [Recovered/Resolved]
  - Decreased appetite [Recovered/Resolved]
  - Pleural effusion [Recovered/Resolved]
  - Nasopharyngitis [Recovered/Resolved]
  - Blood creatinine increased [Recovered/Resolved]
